FAERS Safety Report 7213029-5 (Version None)
Quarter: 2011Q1

REPORT INFORMATION
  Report Type: 
  Country: None (occurrence: None)
  Receive Date: 20110106
  Receipt Date: 20101228
  Transmission Date: 20110831
  Serious: Yes (Life-Threatening)
  Sender: FDA-Public Use
  Company Number: B0683409A

PATIENT
  Sex: Male
  Weight: 71 kg

DRUGS (54)
  1. ALKERAN [Suspect]
     Indication: ALLOGENIC BONE MARROW TRANSPLANTATION THERAPY
     Dosage: 70MG PER DAY
     Route: 042
     Dates: start: 20091018, end: 20091019
  2. METHOTREXATE [Concomitant]
     Dosage: 17MG PER DAY
     Route: 065
     Dates: start: 20091101, end: 20091101
  3. URSO 250 [Concomitant]
     Dosage: 900MG PER DAY
     Route: 048
  4. VALTREX [Concomitant]
     Dosage: 1500MG PER DAY
     Route: 048
  5. GOODMIN [Concomitant]
     Route: 048
     Dates: start: 20091110, end: 20091114
  6. AMBISOME [Concomitant]
     Dosage: 100MG PER DAY
     Route: 042
  7. ANTHROBIN P [Concomitant]
     Dosage: 1.5IU3 PER DAY
     Route: 042
     Dates: end: 20091230
  8. PHYSIO 35 [Concomitant]
     Dosage: 2500ML PER DAY
     Route: 042
     Dates: start: 20091124, end: 20091227
  9. FRAGMIN [Concomitant]
     Dosage: 9ML PER DAY
     Route: 042
  10. MEYLON [Concomitant]
     Dosage: 100ML PER DAY
     Route: 042
     Dates: start: 20091203, end: 20091203
  11. METHOTREXATE [Concomitant]
     Indication: IMMUNOSUPPRESSION
     Dosage: 25MG PER DAY
     Route: 065
     Dates: start: 20091022, end: 20091022
  12. METHOTREXATE [Concomitant]
     Dosage: 17MG PER DAY
     Route: 065
     Dates: start: 20091024, end: 20091024
  13. METHOTREXATE [Concomitant]
     Dosage: 17MG PER DAY
     Route: 065
     Dates: start: 20091027, end: 20091027
  14. ULCERLMIN [Concomitant]
     Dosage: 20ML PER DAY
     Route: 048
     Dates: end: 20091117
  15. CALONAL [Concomitant]
     Route: 048
     Dates: start: 20091111
  16. MEROPENEM [Concomitant]
     Dosage: 2100MG PER DAY
     Route: 042
     Dates: end: 20091208
  17. PROTEAMIN [Concomitant]
     Dosage: 200ML PER DAY
     Route: 042
     Dates: start: 20091124, end: 20091227
  18. MAXIPIME [Concomitant]
     Dosage: 3G PER DAY
     Route: 042
     Dates: start: 20091110
  19. NEOLAMIN [Concomitant]
     Dosage: 1IUAX PER DAY
     Route: 042
     Dates: start: 20091124, end: 20091227
  20. FUROSEMIDE [Concomitant]
     Dosage: 20MG PER DAY
     Route: 042
     Dates: end: 20091229
  21. PROGRAF [Concomitant]
     Dosage: .3MG PER DAY
     Route: 042
     Dates: start: 20091205
  22. GRAN [Concomitant]
     Dosage: 1IUAX PER DAY
     Dates: end: 20091116
  23. ATROPINE SULFATE [Concomitant]
     Dosage: .5MG PER DAY
     Dates: start: 20091111, end: 20091214
  24. GAMIMUNE N 5% [Concomitant]
     Dosage: 5G PER DAY
     Route: 042
     Dates: start: 20091110
  25. TACROLIMUS [Concomitant]
     Indication: IMMUNOSUPPRESSION
     Dosage: .4MG PER DAY
     Route: 065
     Dates: start: 20091020, end: 20091105
  26. POTASSIUM CHLORIDE [Concomitant]
     Dosage: 5G PER DAY
     Route: 042
     Dates: start: 20091124, end: 20091214
  27. DORMICUM [Concomitant]
     Dosage: 10MG PER DAY
     Dates: start: 20091111, end: 20091214
  28. SOLU-MEDROL [Concomitant]
     Dosage: 60ML PER DAY
     Route: 042
     Dates: start: 20091201, end: 20091231
  29. ALBUMIN (HUMAN) [Concomitant]
     Dosage: 500ML PER DAY
     Route: 042
     Dates: start: 20091202, end: 20091203
  30. GASTER [Concomitant]
     Dosage: 20MG PER DAY
     Route: 048
     Dates: start: 20091110
  31. POTASSIUM CHLORIDE [Concomitant]
     Dosage: 20ML PER DAY
     Route: 042
     Dates: end: 20091201
  32. SEPAMIT [Concomitant]
     Route: 042
     Dates: start: 20091209, end: 20091213
  33. CALCICOL [Concomitant]
     Dosage: 20ML PER DAY
     Route: 042
     Dates: start: 20091203, end: 20091223
  34. FLUDARABINE PHOSPHATE [Suspect]
     Indication: ALLOGENIC BONE MARROW TRANSPLANTATION THERAPY
     Dosage: 30MGM2 PER DAY
     Route: 042
     Dates: start: 20091016, end: 20091019
  35. TACROLIMUS [Concomitant]
     Dosage: .3MG PER DAY
     Route: 065
     Dates: start: 20091204, end: 20100209
  36. BAKTAR [Concomitant]
     Dosage: 2IUAX PER DAY
     Route: 042
     Dates: start: 20091118, end: 20091206
  37. HIRUDOID [Concomitant]
     Dosage: 25G PER DAY
     Route: 042
     Dates: start: 20091207
  38. SOLITA-T NO.3 [Concomitant]
     Dosage: 2500ML PER DAY
     Route: 042
     Dates: start: 20091206, end: 20091225
  39. SODIUM CHLORIDE [Concomitant]
     Dosage: 80ML PER DAY
     Route: 042
     Dates: start: 20091124, end: 20091227
  40. ALBUMIN (HUMAN) [Concomitant]
     Dosage: 100ML PER DAY
     Route: 042
     Dates: start: 20091126, end: 20091228
  41. SOLITA-T [Concomitant]
     Dosage: 500ML PER DAY
     Route: 042
     Dates: start: 20091201, end: 20091201
  42. HEPARIN [Concomitant]
     Dosage: 3ML PER DAY
     Dates: start: 20091203
  43. PROGRAF [Concomitant]
     Dosage: .3MG PER DAY
     Route: 048
     Dates: start: 20091221, end: 20091223
  44. AMIKACIN SULFATE [Concomitant]
     Dosage: 20MG PER DAY
     Dates: end: 20091106
  45. TARGOCID [Concomitant]
     Dosage: 800MG PER DAY
     Route: 042
     Dates: start: 20091107, end: 20091111
  46. BENAMBAX [Concomitant]
     Dosage: 1IUAX PER DAY
     Dates: start: 20091204, end: 20091221
  47. VFEND [Concomitant]
     Dosage: 400MG PER DAY
     Route: 042
     Dates: end: 20091209
  48. LOPEMIN [Concomitant]
     Dosage: 2MG PER DAY
     Route: 042
     Dates: start: 20091130, end: 20100103
  49. AZUNOL [Concomitant]
     Dosage: 40G PER DAY
     Route: 042
     Dates: start: 20091207
  50. ELECTROLYTE FLUID [Concomitant]
     Dosage: 2ML PER DAY
     Route: 042
     Dates: start: 20091124, end: 20091227
  51. HUMAN IMMUNE GLOBULIN [Concomitant]
     Dosage: 5G PER DAY
     Route: 042
     Dates: start: 20091124, end: 20091214
  52. CONCLYTE-MG [Concomitant]
     Dosage: 10ML PER DAY
     Dates: end: 20091214
  53. SOLITA-T [Concomitant]
     Dosage: 500ML PER DAY
     Route: 042
     Dates: start: 20091130, end: 20091205
  54. ASPARA K [Concomitant]
     Dosage: 30ML PER DAY
     Route: 042
     Dates: start: 20091201

REACTIONS (3)
  - INTERSTITIAL LUNG DISEASE [None]
  - GRAFT VERSUS HOST DISEASE [None]
  - SEPSIS [None]
